FAERS Safety Report 15048018 (Version 1)
Quarter: 2018Q2

REPORT INFORMATION
  Report Type: Report from Study
  Country: None (occurrence: US)
  Receive Date: 20180622
  Receipt Date: 20180622
  Transmission Date: 20180711
  Serious: Yes (Other)
  Sender: FDA-Public Use
  Company Number: US-ABBVIE-18K-163-2394656-00

PATIENT
  Sex: Female
  Weight: 68.1 kg

DRUGS (1)
  1. HUMIRA [Suspect]
     Active Substance: ADALIMUMAB
     Indication: RHEUMATOID ARTHRITIS
     Route: 058
     Dates: start: 20170811

REACTIONS (8)
  - Upper limb fracture [Unknown]
  - Swelling [Not Recovered/Not Resolved]
  - Joint noise [Not Recovered/Not Resolved]
  - Psoriatic arthropathy [Unknown]
  - Rotator cuff syndrome [Unknown]
  - Ligament rupture [Unknown]
  - Joint dislocation [Unknown]
  - Osteopenia [Unknown]

NARRATIVE: CASE EVENT DATE: 2017
